FAERS Safety Report 22314134 (Version 1)
Quarter: 2023Q2

REPORT INFORMATION
  Report Type: Spontaneous
  Country: US (occurrence: None)
  Receive Date: 20230511
  Receipt Date: 20230511
  Transmission Date: 20230721
  Serious: No
  Sender: FDA-Public Use
  Company Number: None

PATIENT
  Sex: Female
  Weight: 58.97 kg

DRUGS (17)
  1. CAPECITABINE [Suspect]
     Active Substance: CAPECITABINE
     Indication: Lung neoplasm malignant
     Dosage: 1000MG TWICE DAILY ORAL - 14 DAY ON, 7 D OFF?
     Route: 048
  2. CAPECITABINE [Suspect]
     Active Substance: CAPECITABINE
     Indication: Lung neoplasm malignant
     Dosage: 300MG TWICE DAILY ORAL - 14 DAY ON, 7 D OFF
     Route: 048
  3. ALBUTEROL [Concomitant]
     Active Substance: ALBUTEROL
  4. COENZYME Q-10 [Concomitant]
  5. FLAXSEED [Concomitant]
     Active Substance: FLAX SEED
  6. HYDROCHLOROTHIAZIDE [Concomitant]
  7. LEVOTHYROXINE [Concomitant]
  8. LOPID [Concomitant]
     Active Substance: GEMFIBROZIL
  9. MAGNESIUM OXIDE 400 [Concomitant]
  10. OMEGA-3 FATTY ACIDS [Concomitant]
  11. OMEPRAZOLE [Concomitant]
  12. POTASSIUM GLUCONATE [Concomitant]
  13. PREDNISONE [Concomitant]
  14. TEMODAR [Concomitant]
  15. VERELAN [Concomitant]
     Active Substance: VERAPAMIL HYDROCHLORIDE
  16. VITAMIN C [Concomitant]
  17. VITAMIN D3 [Concomitant]
     Active Substance: CHOLECALCIFEROL

REACTIONS (1)
  - Hospice care [None]
